FAERS Safety Report 8015391-2 (Version None)
Quarter: 2011Q4

REPORT INFORMATION
  Report Type: 
  Country: None (occurrence: None)
  Receive Date: 20111230
  Receipt Date: 20111222
  Transmission Date: 20120403
  Serious: Yes (Other)
  Sender: FDA-Public Use
  Company Number: US-ASTELLAS-2011US008678

PATIENT
  Age: 62 Year
  Sex: Female

DRUGS (1)
  1. PROGRAF [Suspect]
     Indication: LIVER TRANSPLANT
     Dosage: 3-4 MG, UID/QD
     Route: 065
     Dates: start: 20110401

REACTIONS (2)
  - LUPUS-LIKE SYNDROME [None]
  - MUSCLE SPASMS [None]
